FAERS Safety Report 9338432 (Version 4)
Quarter: 2013Q3

REPORT INFORMATION
  Report Type: Spontaneous
  Country: US (occurrence: US)
  Receive Date: 20130610
  Receipt Date: 20130819
  Transmission Date: 20140515
  Serious: Yes (Other)
  Sender: FDA-Public Use
  Company Number: US-PFIZER INC-2013174239

PATIENT
  Sex: Male

DRUGS (1)
  1. LYRICA [Suspect]
     Indication: NEURALGIA
     Dosage: UNK

REACTIONS (12)
  - Spinal cord disorder [Unknown]
  - Visual impairment [Unknown]
  - Local swelling [Unknown]
  - Joint swelling [Unknown]
  - Swollen tongue [Unknown]
  - Lip swelling [Unknown]
  - Neuropathy peripheral [Unknown]
  - Drug ineffective [Unknown]
  - Pharyngeal disorder [Unknown]
  - Peripheral coldness [Unknown]
  - Limb discomfort [Unknown]
  - Dry throat [Unknown]
